FAERS Safety Report 4843933-4 (Version None)
Quarter: 2005Q4

REPORT INFORMATION
  Report Type: 
  Country: None (occurrence: None)
  Receive Date: 20051202
  Receipt Date: 20050629
  Transmission Date: 20060501
  Serious: No
  Sender: FDA-Public Use
  Company Number: US-GLAXOSMITHKLINE-A0564613A

PATIENT
  Age: 82 Year
  Sex: Female

DRUGS (8)
  1. AUGMENTIN [Suspect]
     Dosage: 500MG THREE TIMES PER DAY
     Route: 048
     Dates: start: 20050401
  2. COUMADIN [Concomitant]
  3. CARDIZEM [Concomitant]
  4. ZOCOR [Concomitant]
  5. LANOXIN [Concomitant]
  6. SINGULAIR [Concomitant]
  7. SYNTHROID [Concomitant]
  8. MILK OF MAGNESIA TAB [Concomitant]

REACTIONS (5)
  - CONSTIPATION [None]
  - GASTRIC INFECTION [None]
  - GENITAL RASH [None]
  - RASH [None]
  - VISUAL DISTURBANCE [None]
